FAERS Safety Report 12147631 (Version 2)
Quarter: 2016Q1

REPORT INFORMATION
  Report Type: Spontaneous
  Country: NO (occurrence: NO)
  Receive Date: 20160304
  Receipt Date: 20160318
  Transmission Date: 20160526
  Serious: Yes (Hospitalization)
  Sender: FDA-Public Use
  Company Number: NO-ASTRAZENECA-2016SE20296

PATIENT
  Age: 23323 Day
  Sex: Female

DRUGS (8)
  1. BYDUREON [Suspect]
     Active Substance: EXENATIDE
     Indication: TYPE 2 DIABETES MELLITUS
     Route: 065
     Dates: start: 20160116, end: 20160213
  2. CHOLESTEROL REDUCING MEDICATIONS [Concomitant]
  3. ESTROGEN SUPPOSITORIES [Concomitant]
     Dates: start: 20160205, end: 20160216
  4. PRAVASTATIN [Concomitant]
     Active Substance: PRAVASTATIN\PRAVASTATIN SODIUM
     Dates: start: 2010
  5. LEVAXIN [Concomitant]
     Active Substance: LEVOTHYROXINE SODIUM
     Indication: HYPOTHYROIDISM
     Dates: start: 2005
  6. QUININE [Concomitant]
     Active Substance: QUININE
     Indication: MUSCLE SPASMS
     Route: 065
     Dates: start: 20160113, end: 20160216
  7. ZYLORIC [Concomitant]
     Active Substance: ALLOPURINOL
  8. CO APROVEL [Concomitant]
     Active Substance: HYDROCHLOROTHIAZIDE\IRBESARTAN
     Indication: HYPERTENSION
     Dosage: 300 MG/125 MG
     Dates: start: 2005, end: 20160217

REACTIONS (7)
  - Bundle branch block left [Unknown]
  - Diarrhoea [Not Recovered/Not Resolved]
  - Vomiting [Unknown]
  - Injection site nodule [Unknown]
  - Renal failure [Unknown]
  - Muscle spasms [Unknown]
  - Dehydration [Unknown]

NARRATIVE: CASE EVENT DATE: 20160216
